FAERS Safety Report 8054333-0 (Version None)
Quarter: 2012Q1

REPORT INFORMATION
  Report Type: 
  Country: None (occurrence: None)
  Receive Date: 20120118
  Receipt Date: 20120114
  Transmission Date: 20120608
  Serious: Yes (Other)
  Sender: FDA-Public Use
  Company Number: PHHY2011SA112015

PATIENT
  Age: 27 Year
  Sex: Female
  Weight: 40 kg

DRUGS (4)
  1. VITAMIN D [Concomitant]
  2. FOLIC ACID [Concomitant]
  3. EXJADE [Suspect]
     Indication: IRON OVERLOAD
     Dosage: 30 MG/KG/ DAY
     Route: 048
     Dates: end: 20111101
  4. CALCIUM CARBONATE [Concomitant]

REACTIONS (2)
  - LEUKOPENIA [None]
  - APLASIA PURE RED CELL [None]
